FAERS Safety Report 24228968 (Version 1)
Quarter: 2024Q3

REPORT INFORMATION
  Report Type: Spontaneous
  Country: US (occurrence: None)
  Receive Date: 20240819
  Receipt Date: 20240819
  Transmission Date: 20241017
  Serious: Yes (Disabling)
  Sender: Public
  Company Number: None

PATIENT
  Age: 68 Year
  Sex: Female
  Weight: 67.5 kg

DRUGS (2)
  1. RECLAST [Suspect]
     Active Substance: ZOLEDRONIC ACID
     Dates: start: 20230410, end: 20240410
  2. LEVOTHYROXINE [Concomitant]
     Active Substance: LEVOTHYROXINE\LEVOTHYROXINE SODIUM

REACTIONS (6)
  - Bone pain [None]
  - Myalgia [None]
  - Arthralgia [None]
  - Muscle spasms [None]
  - Gait inability [None]
  - Diarrhoea [None]

NARRATIVE: CASE EVENT DATE: 20230410
